FAERS Safety Report 6201514-4 (Version None)
Quarter: 2009Q2

REPORT INFORMATION
  Report Type: 
  Country: None (occurrence: None)
  Receive Date: 20090526
  Receipt Date: 20090514
  Transmission Date: 20091009
  Serious: Yes (Hospitalization)
  Sender: FDA-Public Use
  Company Number: US-WYE-H09358309

PATIENT
  Sex: Female

DRUGS (3)
  1. PRISTIQ [Suspect]
     Indication: MAJOR DEPRESSION
     Route: 048
     Dates: start: 20090101
  2. ACETYLSALICYLIC ACID SRT [Suspect]
     Dosage: OVERDOSE AMOUNT ^293^
     Dates: start: 20090513, end: 20090513
  3. ABILIFY [Suspect]
     Dosage: UNKNOWN
     Dates: start: 20090101

REACTIONS (2)
  - INTENTIONAL OVERDOSE [None]
  - SUICIDE ATTEMPT [None]
